FAERS Safety Report 23747969 (Version 8)
Quarter: 2024Q4

REPORT INFORMATION
  Report Type: Spontaneous
  Country: GB (occurrence: GB)
  Receive Date: 20240416
  Receipt Date: 20241010
  Transmission Date: 20250115
  Serious: Yes (Hospitalization)
  Sender: VERTEX
  Company Number: US-VERTEX PHARMACEUTICALS-2024-006337

PATIENT
  Sex: Female

DRUGS (2)
  1. ELEXACAFTOR\IVACAFTOR\TEZACAFTOR [Suspect]
     Active Substance: ELEXACAFTOR\IVACAFTOR\TEZACAFTOR
     Indication: Cystic fibrosis
     Dosage: UNKNOWN DOSE
     Route: 048
  2. CLOFAZIMINE [Suspect]
     Active Substance: CLOFAZIMINE
     Indication: Atypical mycobacterial infection
     Dosage: UNK
     Route: 048
     Dates: start: 202110

REACTIONS (8)
  - Biliary colic [Recovered/Resolved]
  - Abdominal pain upper [Recovered/Resolved]
  - Atypical mycobacterial infection [Not Recovered/Not Resolved]
  - Pleuritic pain [Unknown]
  - Productive cough [Recovered/Resolved]
  - Liver disorder [Unknown]
  - Skin discolouration [Unknown]
  - General physical health deterioration [Unknown]

NARRATIVE: CASE EVENT DATE: 20210101
